FAERS Safety Report 23128844 (Version 1)
Quarter: 2023Q4

REPORT INFORMATION
  Report Type: Spontaneous
  Country: CA (occurrence: CA)
  Receive Date: 20231031
  Receipt Date: 20231031
  Transmission Date: 20240110
  Serious: Yes (Other)
  Sender: FDA-Public Use
  Company Number: None

PATIENT
  Age: 57 Year
  Sex: Female

DRUGS (1)
  1. ESCITALOPRAM [Suspect]
     Active Substance: ESCITALOPRAM OXALATE
     Indication: Depression
     Dosage: 1 EVERY 1 DAY
     Route: 048

REACTIONS (4)
  - Hypersomnia [Unknown]
  - Depressed level of consciousness [Unknown]
  - Somnolence [Unknown]
  - Sedation [Unknown]
